FAERS Safety Report 14042052 (Version 1)
Quarter: 2017Q4

REPORT INFORMATION
  Report Type: Report from Study
  Country: US (occurrence: US)
  Receive Date: 20171004
  Receipt Date: 20171004
  Transmission Date: 20180321
  Serious: No
  Sender: FDA-Public Use
  Company Number: US-AMGEN-USASL2017026372

PATIENT
  Age: 84 Year
  Sex: Female
  Weight: 58.24 kg

DRUGS (13)
  1. OXYBUTYNIN CHLORIDE. [Concomitant]
     Active Substance: OXYBUTYNIN CHLORIDE
     Dosage: 5 MG, QD
     Route: 048
     Dates: start: 20160330
  2. VOLTAREN [Concomitant]
     Active Substance: DICLOFENAC SODIUM
     Dosage: UNK UNK, QID
     Route: 061
  3. PROLIA [Suspect]
     Active Substance: DENOSUMAB
     Indication: OSTEOPOROSIS
     Dosage: 60 MG, Q6MO
     Route: 058
  4. LASIX [Concomitant]
     Active Substance: FUROSEMIDE
     Dosage: 20 MG, QD
     Route: 048
     Dates: start: 20150701
  5. HYDROCHLOROTHIAZIDE. [Concomitant]
     Active Substance: HYDROCHLOROTHIAZIDE
     Dosage: 12.5 MG, QD
     Route: 048
  6. PRAMIPEXOLE. [Concomitant]
     Active Substance: PRAMIPEXOLE
     Dosage: 0.25 MG, QD
     Route: 048
     Dates: start: 20160111
  7. TRAMADOL. [Concomitant]
     Active Substance: TRAMADOL
     Dosage: 50 MG, Q6H (AS NEEDED)
     Route: 048
  8. IRON [Concomitant]
     Active Substance: IRON
     Dosage: 325 MG (65 MG IORN) TABLET, 2 IN AM AND 2 IN PM
  9. NACRO [Concomitant]
     Indication: PAIN
     Dosage: 5MG-325MG, Q8H (PRN)
     Route: 048
     Dates: start: 20161107
  10. ONDANSETRON HCL [Concomitant]
     Active Substance: ONDANSETRON HYDROCHLORIDE
     Indication: NAUSEA
     Dosage: 4 MG, Q8H (PRN)
     Route: 048
     Dates: start: 20160531
  11. POTASSIUM CHLORIDE. [Concomitant]
     Active Substance: POTASSIUM CHLORIDE
     Dosage: 20 UNK, BID
     Dates: start: 20161228
  12. PROLIA [Suspect]
     Active Substance: DENOSUMAB
     Indication: INJURY
  13. SYNTHROID [Concomitant]
     Active Substance: LEVOTHYROXINE SODIUM
     Dosage: 88 MUG, QD
     Route: 048
     Dates: start: 20161213

REACTIONS (1)
  - Off label use [Unknown]
